FAERS Safety Report 4954685-1 (Version None)
Quarter: 2006Q1

REPORT INFORMATION
  Report Type: 
  Country: None (occurrence: None)
  Receive Date: 20060131
  Receipt Date: 20051027
  Transmission Date: 20060701
  Serious: No
  Sender: FDA-Public Use
  Company Number: WAES 0510USA09346

PATIENT
  Age: 28 Year
  Sex: Female
  Weight: 53.978 kg

DRUGS (5)
  1. EMEND [Suspect]
     Indication: CHEMOTHERAPY
     Dosage: PO
     Route: 048
     Dates: start: 20050901
  2. EMEND [Suspect]
     Indication: PROPHYLAXIS
     Dosage: PO
     Route: 048
     Dates: start: 20050901
  3. CYCLOPHOSPHAMIDE [Concomitant]
  4. DEXAMETHASONE [Concomitant]
  5. DOXORUBICIN HCL [Concomitant]

REACTIONS (1)
  - VISUAL DISTURBANCE [None]
